FAERS Safety Report 6130549-5 (Version None)
Quarter: 2009Q1

REPORT INFORMATION
  Report Type: 
  Country: None (occurrence: None)
  Receive Date: 20090323
  Receipt Date: 20090313
  Transmission Date: 20090719
  Serious: Yes (Hospitalization, Other)
  Sender: FDA-Public Use
  Company Number: 2009SP005630

PATIENT
  Age: 48 Year
  Sex: Female

DRUGS (5)
  1. TEMODAR [Suspect]
     Indication: OLIGODENDROGLIOMA
     Dosage: 350 MG; PO
     Route: 048
     Dates: start: 20090222, end: 20090226
  2. TOPOTECAN [Suspect]
     Indication: OLIGODENDROGLIOMA
     Dosage: 4 MG; PO
     Route: 048
     Dates: start: 20090223, end: 20090227
  3. TEGRETOL [Concomitant]
  4. KEFLEX [Concomitant]
  5. ZOFRAN [Concomitant]

REACTIONS (6)
  - BRAIN OEDEMA [None]
  - DIARRHOEA [None]
  - DISEASE PROGRESSION [None]
  - FEBRILE NEUTROPENIA [None]
  - MENTAL STATUS CHANGES [None]
  - PANCYTOPENIA [None]
